FAERS Safety Report 21515438 (Version 2)
Quarter: 2022Q4

REPORT INFORMATION
  Report Type: Other
  Country: US (occurrence: None)
  Receive Date: 20221027
  Receipt Date: 20221114
  Transmission Date: 20230113
  Serious: Yes (Death, Other)
  Sender: FDA-Public Use
  Company Number: US-ROCHE-3204382

PATIENT
  Age: 51 Year
  Sex: Male

DRUGS (4)
  1. OCREVUS [Suspect]
     Active Substance: OCRELIZUMAB
     Indication: Relapsing-remitting multiple sclerosis
     Dosage: 22/MAR/2021
     Route: 042
     Dates: start: 202003, end: 20220608
  2. OCREVUS [Suspect]
     Active Substance: OCRELIZUMAB
     Dosage: ONGOING: NO
     Route: 042
     Dates: start: 20190423, end: 20220608
  3. COPAXONE [Concomitant]
     Active Substance: GLATIRAMER ACETATE
  4. AUBAGIO [Concomitant]
     Active Substance: TERIFLUNOMIDE

REACTIONS (6)
  - Cardiac failure [Fatal]
  - Colitis [Recovered/Resolved]
  - Dementia [Recovered/Resolved]
  - Multiple sclerosis [Recovered/Resolved]
  - Fall [Unknown]
  - Drug ineffective [Unknown]

NARRATIVE: CASE EVENT DATE: 20221016
